FAERS Safety Report 4707082-8 (Version None)
Quarter: 2005Q3

REPORT INFORMATION
  Report Type: 
  Country: None (occurrence: None)
  Receive Date: 20050701
  Receipt Date: 20050620
  Transmission Date: 20060218
  Serious: Yes (Other)
  Sender: FDA-Public Use
  Company Number: EM2005-0298

PATIENT
  Age: 39 Year
  Sex: Male

DRUGS (14)
  1. PROLEUKIN [Suspect]
     Indication: HIV INFECTION
     Dosage: 1 MIU, TID, SUBCUTAN.
     Route: 058
     Dates: start: 20050613, end: 20050618
  2. COMBIVIR [Concomitant]
  3. NEVIRAPINE [Concomitant]
  4. XANAX [Concomitant]
  5. SEREVENT [Concomitant]
  6. LORCET-HD [Concomitant]
  7. ACYCLOVIR [Concomitant]
  8. CELEBREX [Concomitant]
  9. PRILOSEC [Concomitant]
  10. IBUPROFEN [Concomitant]
  11. TESTOSTERONE [Concomitant]
  12. BENADRYL [Concomitant]
  13. PROZAC [Concomitant]
  14. NEURONTIN [Concomitant]

REACTIONS (4)
  - INFLUENZA LIKE ILLNESS [None]
  - NAUSEA [None]
  - PARAESTHESIA [None]
  - VOMITING [None]
